FAERS Safety Report 17832009 (Version 1)
Quarter: 2020Q2

REPORT INFORMATION
  Report Type: Spontaneous
  Country: GB (occurrence: GB)
  Receive Date: 20200528
  Receipt Date: 20200528
  Transmission Date: 20200714
  Serious: Yes (Death)
  Sender: FDA-Public Use
  Company Number: GB-BAXTER-2020BAX010507

PATIENT

DRUGS (24)
  1. SYNTHAMIN [Suspect]
     Active Substance: AMINO ACIDS
     Indication: PARENTERAL NUTRITION
     Route: 042
  2. GLUCOSE 50% W/V CONCENTRATE FOR SOLUTION FOR INFUSION [Suspect]
     Active Substance: DEXTROSE
     Route: 042
  3. WATER FOR INJECTION [Suspect]
     Active Substance: WATER
     Route: 042
  4. CALCIUM CHLORIDE. [Suspect]
     Active Substance: CALCIUM CHLORIDE
     Indication: PARENTERAL NUTRITION
     Dosage: CALCIUM CHLORIDE 1 MILLIMOLE PER MILLILITER [MMOL/ML]
     Route: 042
  5. ADDITRACE [Suspect]
     Active Substance: MINERALS
     Indication: PARENTERAL NUTRITION
     Route: 042
  6. CERNEVIT [Suspect]
     Active Substance: VITAMINS
     Indication: PARENTERAL NUTRITION
     Route: 042
  7. MAGNESIUM SULPHATE [Suspect]
     Active Substance: MAGNESIUM SULFATE
     Dosage: MAGNESIUM SULPHATE 49.3% BAG
     Route: 042
  8. ASCORBIC ACID. [Suspect]
     Active Substance: ASCORBIC ACID
     Indication: PARENTERAL NUTRITION
     Dosage: ASCORBIC ACID 100 MG/ML
     Route: 042
  9. WATER FOR TPN [Suspect]
     Active Substance: WATER
     Indication: PARENTERAL NUTRITION
     Route: 042
  10. SODIUM GLYCEROPHOSPHATE [Suspect]
     Active Substance: SODIUM GLYCEROPHOSPHATE
     Dosage: SODIUM GLYCEROPHOSPHATE 30%
     Route: 042
  11. SODIUM CHLORIDE. [Suspect]
     Active Substance: SODIUM CHLORIDE
     Dosage: SODIUM CHLORIDE 23.5%
     Route: 042
  12. SYNTHAMIN [Suspect]
     Active Substance: AMINO ACIDS
     Route: 042
  13. GLUCOSE 50% W/V CONCENTRATE FOR SOLUTION FOR INFUSION [Suspect]
     Active Substance: DEXTROSE
     Indication: PARENTERAL NUTRITION
     Route: 042
  14. CERNEVIT [Suspect]
     Active Substance: VITAMINS
     Route: 042
  15. SMOFLIPID [Suspect]
     Active Substance: FISH OIL\MEDIUM-CHAIN TRIGLYCERIDES\OLIVE OIL\SOYBEAN OIL
     Indication: PARENTERAL NUTRITION
     Dosage: SMOFLIPID 200  MG/ML
     Route: 042
  16. SODIUM CHLORIDE. [Suspect]
     Active Substance: SODIUM CHLORIDE
     Indication: PARENTERAL NUTRITION
     Dosage: SODIUM CHLORIDE 23.5%
     Route: 042
  17. ADDITRACE [Suspect]
     Active Substance: MINERALS
     Route: 042
  18. WATER FOR TPN [Suspect]
     Active Substance: WATER
     Route: 042
  19. POTASSIUM CHLORIDE. [Suspect]
     Active Substance: POTASSIUM CHLORIDE
     Indication: PARENTERAL NUTRITION
     Dosage: POTASSIUM CHLORIDE 22%
     Route: 042
  20. POTASSIUM CHLORIDE. [Suspect]
     Active Substance: POTASSIUM CHLORIDE
     Dosage: POTASSIUM CHLORIDE 22%
     Route: 042
  21. MAGNESIUM SULPHATE [Suspect]
     Active Substance: MAGNESIUM SULFATE
     Indication: PARENTERAL NUTRITION
     Dosage: MAGNESIUM SULPHATE 49.3% BAG
     Route: 042
  22. WATER FOR INJECTION [Suspect]
     Active Substance: WATER
     Indication: PARENTERAL NUTRITION
     Route: 042
  23. CALCIUM CHLORIDE. [Suspect]
     Active Substance: CALCIUM CHLORIDE
     Dosage: CALCIUM CHLORIDE 1 MILLIMOLE PER MILLILITER [MMOL/ML]
     Route: 042
  24. SODIUM GLYCEROPHOSPHATE [Suspect]
     Active Substance: SODIUM GLYCEROPHOSPHATE
     Indication: PARENTERAL NUTRITION
     Dosage: SODIUM GLYCEROPHOSPHATE 30%
     Route: 042

REACTIONS (1)
  - Death [Fatal]
